FAERS Safety Report 24968161 (Version 1)
Quarter: 2025Q1

REPORT INFORMATION
  Report Type: Spontaneous
  Country: US (occurrence: US)
  Receive Date: 20250214
  Receipt Date: 20250214
  Transmission Date: 20250408
  Serious: No
  Sender: Haleon PLC
  Company Number: US-HALEON-2227923

PATIENT
  Sex: Female

DRUGS (2)
  1. VOLTAREN [Suspect]
     Active Substance: DICLOFENAC SODIUM
     Indication: Sjogren^s syndrome
  2. XIIDRA [Suspect]
     Active Substance: LIFITEGRAST
     Indication: Sjogren^s syndrome
     Route: 047

REACTIONS (10)
  - Headache [Unknown]
  - Product use in unapproved indication [Unknown]
  - Arthritis [Unknown]
  - Inflammation [Unknown]
  - Visual impairment [Unknown]
  - Migraine [Unknown]
  - Pain in extremity [Unknown]
  - Synovial cyst [Unknown]
  - Pain [Unknown]
  - Ear pain [Unknown]
